FAERS Safety Report 8824812 (Version 1)
Quarter: 2012Q4

REPORT INFORMATION
  Report Type: Report from Study
  Country: US (occurrence: US)
  Receive Date: 20121004
  Receipt Date: 20121004
  Transmission Date: 20130627
  Serious: Yes (Other)
  Sender: FDA-Public Use
  Company Number: US-ROCHE-1136408

PATIENT

DRUGS (3)
  1. HERCEPTIN [Suspect]
     Indication: BREAST CANCER
     Route: 065
  2. CARBOPLATIN [Suspect]
     Indication: BREAST CANCER
  3. TAXOTERE [Suspect]
     Indication: BREAST CANCER

REACTIONS (2)
  - Therapy cessation [Unknown]
  - Neoplasm malignant [Unknown]
